FAERS Safety Report 12497617 (Version 1)
Quarter: 2016Q2

REPORT INFORMATION
  Report Type: Report from Study
  Country: JP (occurrence: JP)
  Receive Date: 20160625
  Receipt Date: 20160625
  Transmission Date: 20160815
  Serious: Yes (Hospitalization, Other)
  Sender: FDA-Public Use
  Company Number: JP-SHIRE-JP201516866

PATIENT
  Age: 85 Year
  Sex: Female
  Weight: 41 kg

DRUGS (4)
  1. 422 (ANAGRELIDE) [Suspect]
     Active Substance: ANAGRELIDE
     Dosage: 1.5 MG/DAY
     Route: 048
     Dates: start: 20150305, end: 20150318
  2. HYDREA [Concomitant]
     Active Substance: HYDROXYUREA
     Indication: ESSENTIAL THROMBOCYTHAEMIA
     Dosage: 500-1500 MG/DAY, UNKNOWN
     Route: 065
     Dates: end: 20150416
  3. 422 (ANAGRELIDE) [Suspect]
     Active Substance: ANAGRELIDE
     Indication: ESSENTIAL THROMBOCYTHAEMIA
     Dosage: 2 MG/DAY
     Route: 048
     Dates: start: 20150319
  4. 422 (ANAGRELIDE) [Suspect]
     Active Substance: ANAGRELIDE
     Dosage: 1 MG/DAY
     Route: 048
     Dates: start: 20150122, end: 20150304

REACTIONS (2)
  - Hyperuricaemia [Recovered/Resolved]
  - Cerebral infarction [Recovered/Resolved]

NARRATIVE: CASE EVENT DATE: 20150528
